FAERS Safety Report 6490909-X (Version None)
Quarter: 2009Q4

REPORT INFORMATION
  Report Type: 
  Country: None (occurrence: None)
  Receive Date: 20091211
  Receipt Date: 20091203
  Transmission Date: 20100525
  Serious: Yes (Death, Hospitalization)
  Sender: FDA-Public Use
  Company Number: US-WATSON-2009-10395

PATIENT
  Age: 61 Year
  Sex: Male

DRUGS (3)
  1. FLUOROURACIL [Suspect]
     Indication: COLON CANCER
     Dosage: UNK
     Dates: start: 20080107
  2. FOLINIC ACID [Suspect]
     Indication: COLON CANCER
     Dosage: UNK
     Dates: start: 20080107
  3. OXALIPLATIN [Suspect]
     Indication: COLON CANCER
     Dosage: UNK
     Dates: start: 20080107

REACTIONS (1)
  - DIFFUSE ALVEOLAR DAMAGE [None]
